FAERS Safety Report 8920397 (Version 2)
Quarter: 2012Q4

REPORT INFORMATION
  Report Type: 
  Country: US (occurrence: US)
  Receive Date: 20121121
  Receipt Date: 20121128
  Transmission Date: 20130627
  Serious: Yes (Other)
  Sender: FDA-Public Use
  Company Number: US-PFIZER INC-2012288425

PATIENT
  Sex: Male

DRUGS (2)
  1. TORISEL [Suspect]
     Dosage: UNK
  2. AVASTIN [Suspect]
     Dosage: UNK

REACTIONS (5)
  - Second primary malignancy [Unknown]
  - Vipoma [Unknown]
  - Headache [Unknown]
  - Nausea [Unknown]
  - Vomiting [Unknown]
